FAERS Safety Report 8843241 (Version 2)
Quarter: 2019Q4

REPORT INFORMATION
  Report Type: Spontaneous
  Country: DE (occurrence: DE)
  Receive Date: 20121016
  Receipt Date: 20191209
  Transmission Date: 20200122
  Serious: Yes (Congenital Anomaly, Other)
  Sender: FDA-Public Use
  Company Number: GXKR2012DE003198

PATIENT
  Sex: Female
  Weight: 1.68 kg

DRUGS (6)
  1. METOPROLOL. [Concomitant]
     Active Substance: METOPROLOL
     Indication: FOETAL EXPOSURE DURING PREGNANCY
     Dosage: UNK
     Route: 064
  2. NOVORAPID [Concomitant]
     Active Substance: INSULIN ASPART
     Indication: FOETAL EXPOSURE DURING PREGNANCY
     Dosage: 52 IU, QD
     Route: 064
  3. DOPEGYT [Suspect]
     Active Substance: METHYLDOPA
     Indication: FOETAL EXPOSURE DURING PREGNANCY
     Dosage: MATERNAL DOSE: 250 [MG/D (3X 250) ]
     Route: 064
  4. PROTAPHANE [Concomitant]
     Active Substance: INSULIN HUMAN
     Indication: FOETAL EXPOSURE DURING PREGNANCY
     Dosage: 30 IU, QD
     Route: 064
  5. METFORMIN [Suspect]
     Active Substance: METFORMIN HYDROCHLORIDE
     Indication: FOETAL EXPOSURE DURING PREGNANCY
     Dosage: UNK
     Route: 064
  6. RAMIPRIL. [Suspect]
     Active Substance: RAMIPRIL
     Indication: FOETAL EXPOSURE DURING PREGNANCY
     Dosage: UNK
     Route: 064

REACTIONS (9)
  - Bicuspid aortic valve [Not Recovered/Not Resolved]
  - Premature baby [Unknown]
  - Low birth weight baby [Unknown]
  - Patent ductus arteriosus [Recovered/Resolved]
  - Neonatal respiratory distress syndrome [Recovered/Resolved]
  - Congenital mitral valve incompetence [Not Recovered/Not Resolved]
  - Congenital aortic valve stenosis [Recovered/Resolved with Sequelae]
  - Foetal exposure during pregnancy [Recovered/Resolved]
  - Atrial septal defect [Not Recovered/Not Resolved]

NARRATIVE: CASE EVENT DATE: 20100210
